FAERS Safety Report 8874925 (Version 1)
Quarter: 2012Q4

REPORT INFORMATION
  Report Type: 
  Country: US (occurrence: US)
  Receive Date: 20121030
  Receipt Date: 20121030
  Transmission Date: 20130627
  Serious: Yes (Hospitalization)
  Sender: FDA-Public Use
  Company Number: US-GILEAD-2012-0063781

PATIENT
  Sex: Female

DRUGS (2)
  1. LETAIRIS [Suspect]
     Indication: HIV INFECTION
     Dosage: 5 mg, QD
     Route: 048
     Dates: start: 20120307
  2. REVATIO [Concomitant]

REACTIONS (1)
  - Overdose [Unknown]
